FAERS Safety Report 6339218-X (Version None)
Quarter: 2009Q3

REPORT INFORMATION
  Report Type: 
  Country: None (occurrence: None)
  Receive Date: 20090903
  Receipt Date: 20090825
  Transmission Date: 20100115
  Serious: Yes (Hospitalization)
  Sender: FDA-Public Use
  Company Number: JP-ASTRAZENECA-2009SE10543

PATIENT
  Sex: Male
  Weight: 55 kg

DRUGS (9)
  1. BLOPRESS [Suspect]
     Indication: HYPERTENSION
     Route: 048
     Dates: start: 20081121, end: 20090605
  2. ACTOS [Suspect]
     Indication: TYPE 2 DIABETES MELLITUS
     Route: 048
     Dates: start: 20081121, end: 20090605
  3. GLIMICRON [Suspect]
     Indication: TYPE 2 DIABETES MELLITUS
     Route: 048
     Dates: start: 20081121, end: 20081204
  4. GLIMICRON [Suspect]
     Route: 048
     Dates: start: 20081205, end: 20090108
  5. GLIMICRON [Suspect]
     Route: 048
     Dates: start: 20090109, end: 20090605
  6. ALLELOCK [Concomitant]
     Indication: GENERALISED ERYTHEMA
     Route: 048
     Dates: start: 20081117
  7. TOPSYM [Concomitant]
     Indication: GENERALISED ERYTHEMA
     Route: 062
     Dates: start: 20081117
  8. HIRUDOID SOFT [Concomitant]
     Indication: GENERALISED ERYTHEMA
     Route: 062
     Dates: start: 20081117
  9. GARASONE [Concomitant]
     Indication: GENERALISED ERYTHEMA
     Route: 062
     Dates: start: 20081117

REACTIONS (3)
  - JAUNDICE [None]
  - LIVER DISORDER [None]
  - OEDEMA PERIPHERAL [None]
